FAERS Safety Report 7981443-6 (Version None)
Quarter: 2011Q4

REPORT INFORMATION
  Report Type: 
  Country: None (occurrence: None)
  Receive Date: 20111215
  Receipt Date: 20111209
  Transmission Date: 20120403
  Serious: Yes (Hospitalization)
  Sender: FDA-Public Use
  Company Number: US-VERTEX PHARMACEUTICALS INC.-AE-2011-004715

PATIENT
  Age: 28 Year
  Sex: Male

DRUGS (3)
  1. RIBAVIRIN [Concomitant]
     Indication: HEPATITIS C
     Dates: end: 20111205
  2. INTERFERON [Concomitant]
     Indication: HEPATITIS C
     Dates: end: 20111205
  3. INCIVEK [Suspect]
     Indication: HEPATITIS C
     Dates: end: 20111205

REACTIONS (4)
  - PRURITUS [None]
  - LOCALISED OEDEMA [None]
  - FACE OEDEMA [None]
  - RASH [None]
